FAERS Safety Report 5988157-2 (Version None)
Quarter: 2008Q4

REPORT INFORMATION
  Report Type: 
  Country: None (occurrence: None)
  Receive Date: 20081208
  Receipt Date: 20081208
  Transmission Date: 20090506
  Serious: Yes (Other)
  Sender: FDA-Public Use
  Company Number: None

PATIENT
  Sex: Male
  Weight: 75.08 kg

DRUGS (1)
  1. SEPTRA [Suspect]
     Indication: ANTIFUNGAL PROPHYLAXIS
     Dosage: 1 DS TABLET DAILY PO
     Route: 048
     Dates: start: 20081103, end: 20081110

REACTIONS (1)
  - THROMBOCYTOPENIA [None]
